FAERS Safety Report 9793318 (Version 1)
Quarter: 2014Q1

REPORT INFORMATION
  Report Type: Spontaneous
  Country: US (occurrence: US)
  Receive Date: 20140102
  Receipt Date: 20140102
  Transmission Date: 20141002
  Serious: Yes (Other)
  Sender: FDA-Public Use
  Company Number: US-MALLINCKRODT-T201304999

PATIENT
  Sex: Male

DRUGS (1)
  1. METHYLPHENIDATE HYDROCHLORIDE EXTENDED RELEASE TABLETS [Suspect]
     Indication: PRODUCT USED FOR UNKNOWN INDICATION
     Dosage: 36 MG, UNK
     Route: 065
     Dates: start: 201304

REACTIONS (6)
  - Depression [Unknown]
  - Abdominal pain upper [Unknown]
  - Headache [Unknown]
  - Decreased appetite [Unknown]
  - Somnolence [Unknown]
  - Drug ineffective [Unknown]
